FAERS Safety Report 10749906 (Version 2)
Quarter: 2015Q1

REPORT INFORMATION
  Report Type: Spontaneous
  Country: US (occurrence: US)
  Receive Date: 20150129
  Receipt Date: 20150210
  Transmission Date: 20150721
  Serious: No
  Sender: FDA-Public Use
  Company Number: US-BAXTER-2015BAX002772

PATIENT

DRUGS (1)
  1. 0.25% ACETIC ACID IRRIGATION, USP IN PLASTIC POUR BOTTLES [Suspect]
     Active Substance: ACETIC ACID
     Indication: PRODUCT USED FOR UNKNOWN INDICATION
     Route: 065

REACTIONS (2)
  - No adverse event [Recovered/Resolved]
  - Wrong drug administered [Unknown]
